FAERS Safety Report 5856900-9 (Version None)
Quarter: 2008Q3

REPORT INFORMATION
  Report Type: 
  Country: None (occurrence: None)
  Receive Date: 20080821
  Receipt Date: 20080821
  Transmission Date: 20090109
  Serious: Yes (Other)
  Sender: FDA-Public Use
  Company Number: None

PATIENT
  Age: 41 Year
  Sex: Female
  Weight: 118.3888 kg

DRUGS (2)
  1. ZOLPIDEM [Suspect]
     Indication: INSOMNIA
     Dosage: 10MG  NIGHTLY AS NEEDED PO
     Route: 048
     Dates: start: 20080620, end: 20080820
  2. ZOLPIDEM [Suspect]
     Indication: POST-TRAUMATIC STRESS DISORDER
     Dosage: 10MG  NIGHTLY AS NEEDED PO
     Route: 048
     Dates: start: 20080620, end: 20080820

REACTIONS (2)
  - DRUG INEFFECTIVE [None]
  - NIGHTMARE [None]
